FAERS Safety Report 4875566-8 (Version None)
Quarter: 2006Q1

REPORT INFORMATION
  Report Type: 
  Country: None (occurrence: None)
  Receive Date: 20060105
  Receipt Date: 20051222
  Transmission Date: 20060701
  Serious: Yes (Life-Threatening, Hospitalization)
  Sender: FDA-Public Use
  Company Number: 2005P1000641

PATIENT
  Age: 56 Year
  Sex: Male
  Weight: 80 kg

DRUGS (14)
  1. RETEPLASE (RETEPLASE) [Suspect]
     Indication: ACUTE MYOCARDIAL INFARCTION
     Dosage: IV
     Route: 042
     Dates: start: 20051120, end: 20051120
  2. ABCIXIMAB (ABCIXIMAB) [Suspect]
     Indication: ACUTE MYOCARDIAL INFARCTION
     Dosage: IV
     Route: 042
     Dates: start: 20051120
  3. ASPIRIN [Concomitant]
  4. CLOPIDOGREL [Concomitant]
  5. AMIODARONE [Concomitant]
  6. ACETYLSALICYLATE LYSINE [Concomitant]
  7. GLYCERYL TRINITRATE [Concomitant]
  8. FUROSEMIDE [Concomitant]
  9. PANTOPRAZOLE SODIUM [Concomitant]
  10. SIMVASTATIN [Concomitant]
  11. METOPROLOL [Concomitant]
  12. WARFARIN SODIUM [Concomitant]
  13. CAPTOPRIL [Concomitant]
  14. PARACETAMOL [Concomitant]

REACTIONS (9)
  - BLOOD PRESSURE DECREASED [None]
  - CORONARY ARTERY DISEASE [None]
  - DIAPHRAGMATIC HERNIA [None]
  - DUODENITIS [None]
  - GASTROINTESTINAL HAEMORRHAGE [None]
  - HAEMATOCRIT DECREASED [None]
  - HAEMOGLOBIN DECREASED [None]
  - PNEUMOTHORAX [None]
  - VENTRICULAR FIBRILLATION [None]
